FAERS Safety Report 15338312 (Version 1)
Quarter: 2018Q3

REPORT INFORMATION
  Report Type: Spontaneous
  Country: IT (occurrence: IT)
  Receive Date: 20180831
  Receipt Date: 20180831
  Transmission Date: 20181010
  Serious: Yes (Hospitalization)
  Sender: FDA-Public Use
  Company Number: IT-TEVA-2018-IT-950433

PATIENT
  Age: 68 Year
  Sex: Female

DRUGS (10)
  1. HYDROCHLOROTHIAZIDE. [Suspect]
     Active Substance: HYDROCHLOROTHIAZIDE
     Indication: DIURETIC THERAPY
     Route: 065
  2. LITHIUM. [Suspect]
     Active Substance: LITHIUM
     Dosage: 900 MILLIGRAM DAILY;
     Route: 065
  3. NORTRIPTYLINE [Concomitant]
     Active Substance: NORTRIPTYLINE
     Indication: BIPOLAR DISORDER
     Route: 065
  4. IMIPRAMINE [Concomitant]
     Active Substance: IMIPRAMINE
     Indication: ANTIDEPRESSANT THERAPY
     Route: 065
  5. LITHIUM. [Suspect]
     Active Substance: LITHIUM
     Indication: BIPOLAR DISORDER
     Dosage: 600 MILLIGRAM DAILY; RECEIVING THIS DOSE AT LEAST FOR ONE YEAR
     Route: 065
  6. PIMOZIDE. [Concomitant]
     Active Substance: PIMOZIDE
     Indication: BIPOLAR DISORDER
     Route: 065
     Dates: end: 201508
  7. LEVODOPA [Concomitant]
     Active Substance: LEVODOPA
     Indication: BIPOLAR DISORDER
     Route: 065
     Dates: end: 201509
  8. ROPINIROLE. [Concomitant]
     Active Substance: ROPINIROLE
     Indication: ANTIDEPRESSANT THERAPY
     Dosage: INCREASED GRADUALLY UP TO 8 MG
     Route: 065
  9. CARBAMAZEPINE. [Concomitant]
     Active Substance: CARBAMAZEPINE
     Indication: BIPOLAR DISORDER
     Route: 065
  10. VENLAFAXINE [Concomitant]
     Active Substance: VENLAFAXINE HYDROCHLORIDE
     Indication: ANTIDEPRESSANT THERAPY
     Route: 065

REACTIONS (4)
  - Toxicity to various agents [Recovered/Resolved with Sequelae]
  - Catatonia [Recovered/Resolved]
  - Nervous system disorder [Recovered/Resolved with Sequelae]
  - Hypercalcaemia [Recovered/Resolved]
